APPROVED DRUG PRODUCT: FLUDEOXYGLUCOSE F18
Active Ingredient: FLUDEOXYGLUCOSE F-18
Strength: 20-200mCi/ML **Federal Register determination that product was not discontinued or withdrawn for safety or effectiveness reasons**
Dosage Form/Route: INJECTABLE;INTRAVENOUS
Application: N021870 | Product #001
Applicant: FEINSTEIN INSTITUTE MEDICAL RESEARCH
Approved: Aug 19, 2005 | RLD: Yes | RS: No | Type: DISCN